FAERS Safety Report 8059951-1 (Version None)
Quarter: 2012Q1

REPORT INFORMATION
  Report Type: 
  Country: None (occurrence: None)
  Receive Date: 20120120
  Receipt Date: 20120112
  Transmission Date: 20120608
  Serious: Yes (Hospitalization)
  Sender: FDA-Public Use
  Company Number: PHFR2011GB007468

PATIENT
  Sex: Female

DRUGS (3)
  1. CLOZARIL [Suspect]
     Indication: SCHIZOPHRENIA
     Route: 048
     Dates: start: 20111130
  2. CLOZARIL [Suspect]
     Dosage: 50 MG PER NIGHT FOR 4 DAY
     Route: 048
  3. BENZODIAZEPINES [Suspect]

REACTIONS (4)
  - TACHYCARDIA [None]
  - ELECTROCARDIOGRAM QT PROLONGED [None]
  - SOMNOLENCE [None]
  - DIFFERENTIAL WHITE BLOOD CELL COUNT ABNORMAL [None]
